FAERS Safety Report 8183474-2 (Version None)
Quarter: 2012Q1

REPORT INFORMATION
  Report Type: 
  Country: None (occurrence: None)
  Receive Date: 20120130
  Receipt Date: 20110817
  Transmission Date: 20120608
  Serious: Yes (Hospitalization, Other)
  Sender: FDA-Public Use
  Company Number: 039676

PATIENT
  Age: 54 Year
  Sex: Female
  Weight: 81.2 kg

DRUGS (5)
  1. PHENOBARBITAL TAB [Suspect]
     Indication: CONVULSION
  2. DILANTIN [Suspect]
     Indication: GRAND MAL CONVULSION
     Dosage: 100 MG QD ORAL
     Route: 048
     Dates: start: 19640101
  3. DILANTIN [Suspect]
     Indication: PETIT MAL EPILEPSY
     Dosage: 100 MG QD ORAL
     Route: 048
     Dates: start: 19640101
  4. KEPPRA [Suspect]
     Indication: CONVULSION
  5. KEPPRA [Suspect]
     Indication: PETIT MAL EPILEPSY

REACTIONS (2)
  - CONVULSION [None]
  - CYSTITIS [None]
